FAERS Safety Report 7373151-X (Version None)
Quarter: 2011Q1

REPORT INFORMATION
  Report Type: 
  Country: None (occurrence: None)
  Receive Date: 20110324
  Receipt Date: 20110322
  Transmission Date: 20110831
  Serious: Yes (Hospitalization)
  Sender: FDA-Public Use
  Company Number: US-PFIZER INC-2011055565

PATIENT
  Age: 44 Year
  Sex: Male
  Weight: 73 kg

DRUGS (5)
  1. LUNESTA [Suspect]
     Indication: INSOMNIA
     Dosage: 2 MG, AT HS
     Route: 048
     Dates: start: 20101001, end: 20101201
  2. LUNESTA [Suspect]
     Dosage: 60 MG, SINGLE
     Route: 048
     Dates: start: 20110101, end: 20110101
  3. AMBIEN CR [Suspect]
     Indication: INSOMNIA
     Dosage: 12.5 MG, AT HS
     Dates: start: 20101201
  4. XANAX [Suspect]
     Indication: DEPRESSION
     Dosage: UNK
  5. LEXAPRO [Suspect]
     Indication: DEPRESSION
     Dosage: UNK

REACTIONS (3)
  - INSOMNIA [None]
  - MULTIPLE DRUG OVERDOSE [None]
  - SUICIDE ATTEMPT [None]
